FAERS Safety Report 8909662 (Version 1)
Quarter: 2012Q4

REPORT INFORMATION
  Report Type: 
  Country: SE (occurrence: SE)
  Receive Date: 20121115
  Receipt Date: 20121115
  Transmission Date: 20130627
  Serious: Yes (Hospitalization)
  Sender: FDA-Public Use
  Company Number: SE-PFIZER INC-2012281422

PATIENT
  Age: 73 Year
  Sex: Male
  Weight: 92.8 kg

DRUGS (8)
  1. GENOTROPIN [Suspect]
     Indication: GROWTH HORMONE DEFICIENCY
     Dosage: 0.4 mg, 1x/day, 7 injections/week
     Route: 058
     Dates: start: 20011121
  2. CORTISONE ACETATE [Concomitant]
     Indication: ACTH DECREASED
     Dosage: UNK
     Dates: start: 19950904
  3. TESTOSTERONE [Concomitant]
     Indication: FSH DECREASED
     Dosage: UNK
     Dates: start: 20060108
  4. TESTOSTERONE [Concomitant]
     Indication: LH DECREASED
  5. ZOCORD [Concomitant]
     Indication: HYPERLIPIDAEMIA NOS
     Dosage: UNK
     Dates: start: 19971201
  6. ATACAND PLUS [Concomitant]
     Indication: HYPERTENSION
     Dosage: UNK
     Dates: start: 20040107
  7. LEVOTHYROXINE [Concomitant]
     Indication: THYROID DISORDER
     Dosage: UNK
     Dates: start: 19860108
  8. LEVOTHYROXINE [Concomitant]
     Indication: PRIMARY HYPOTHYROIDISM

REACTIONS (1)
  - Pyrexia [Unknown]
